FAERS Safety Report 21844892 (Version 2)
Quarter: 2023Q2

REPORT INFORMATION
  Report Type: Spontaneous
  Country: US (occurrence: US)
  Receive Date: 20230110
  Receipt Date: 20230522
  Transmission Date: 20230722
  Serious: Yes (Other)
  Sender: FDA-Public Use
  Company Number: US-GILEAD-2023-0611878

PATIENT
  Age: 53 Year
  Sex: Male
  Weight: 77.098 kg

DRUGS (31)
  1. TRUVADA [Suspect]
     Active Substance: EMTRICITABINE\TENOFOVIR DISOPROXIL FUMARATE
     Indication: HIV infection
     Dosage: UNK
     Route: 048
     Dates: start: 2004
  2. ATRIPLA [Suspect]
     Active Substance: EFAVIRENZ\EMTRICITABINE\TENOFOVIR DISOPROXIL FUMARATE
     Indication: HIV infection
     Dosage: UNK
     Route: 048
     Dates: start: 2004
  3. ATRIPLA [Suspect]
     Active Substance: EFAVIRENZ\EMTRICITABINE\TENOFOVIR DISOPROXIL FUMARATE
     Dosage: UNK
     Route: 048
     Dates: start: 200703, end: 201212
  4. COMPLERA [Suspect]
     Active Substance: EMTRICITABINE\RILPIVIRINE HYDROCHLORIDE\TENOFOVIR DISOPROXIL FUMARATE
     Indication: HIV infection
     Dosage: UNK
     Route: 048
     Dates: start: 2004
  5. COMPLERA [Suspect]
     Active Substance: EMTRICITABINE\RILPIVIRINE HYDROCHLORIDE\TENOFOVIR DISOPROXIL FUMARATE
     Dosage: UNK
     Route: 048
     Dates: start: 201603, end: 201606
  6. STRIBILD [Suspect]
     Active Substance: COBICISTAT\ELVITEGRAVIR\EMTRICITABINE\TENOFOVIR DISOPROXIL FUMARATE
     Indication: HIV infection
     Dosage: UNK
     Route: 065
     Dates: start: 201602
  7. BIKTARVY [Concomitant]
     Active Substance: BICTEGRAVIR SODIUM\EMTRICITABINE\TENOFOVIR ALAFENAMIDE FUMARATE
  8. COMBIVIR [Concomitant]
     Active Substance: LAMIVUDINE\ZIDOVUDINE
  9. CRIXIVAN [Concomitant]
     Active Substance: INDINAVIR SULFATE
  10. DESCOVY [Concomitant]
     Active Substance: EMTRICITABINE\TENOFOVIR ALAFENAMIDE FUMARATE
  11. EMTRIVA [Concomitant]
     Active Substance: EMTRICITABINE
  12. EPIVIR [Concomitant]
     Active Substance: LAMIVUDINE
  13. EPZICOM [Concomitant]
     Active Substance: ABACAVIR SULFATE\LAMIVUDINE
  14. FUZEON [Concomitant]
     Active Substance: ENFUVIRTIDE
  15. GENVOYA [Concomitant]
     Active Substance: COBICISTAT\ELVITEGRAVIR\EMTRICITABINE\TENOFOVIR ALAFENAMIDE FUMARATE
  16. INVIRASE [Concomitant]
     Active Substance: SAQUINAVIR MESYLATE
  17. KALETRA [Concomitant]
     Active Substance: LOPINAVIR\RITONAVIR
  18. LEXIVA [Concomitant]
     Active Substance: FOSAMPRENAVIR CALCIUM
  19. NORVIR [Concomitant]
     Active Substance: RITONAVIR
  20. ODEFSEY [Concomitant]
     Active Substance: EMTRICITABINE\RILPIVIRINE HYDROCHLORIDE\TENOFOVIR ALAFENAMIDE FUMARATE
  21. PREZISTA [Concomitant]
     Active Substance: DARUNAVIR ETHANOLATE
  22. RESCRIPTOR [Concomitant]
     Active Substance: DELAVIRDINE MESYLATE
  23. RETROVIR [Concomitant]
     Active Substance: ZIDOVUDINE
  24. REYATAZ [Concomitant]
     Active Substance: ATAZANAVIR SULFATE
  25. SUSTIVA [Concomitant]
     Active Substance: EFAVIRENZ
  26. SYMFI [Concomitant]
     Active Substance: EFAVIRENZ\LAMIVUDINE\TENOFOVIR DISOPROXIL FUMARATE
  27. TRIUMEQ [Concomitant]
     Active Substance: ABACAVIR SULFATE\DOLUTEGRAVIR SODIUM\LAMIVUDINE
  28. TRIZIVIR [Concomitant]
     Active Substance: ABACAVIR SULFATE\LAMIVUDINE\ZIDOVUDINE
  29. VIRACEPT [Concomitant]
     Active Substance: NELFINAVIR MESYLATE
  30. ZIAGEN [Concomitant]
     Active Substance: ABACAVIR SULFATE
  31. ZERIT [Concomitant]
     Active Substance: STAVUDINE

REACTIONS (10)
  - Chronic kidney disease [Not Recovered/Not Resolved]
  - Osteoporosis [Not Recovered/Not Resolved]
  - Chronic kidney disease [Not Recovered/Not Resolved]
  - Chronic kidney disease [Not Recovered/Not Resolved]
  - Bone demineralisation [Not Recovered/Not Resolved]
  - Anhedonia [Not Recovered/Not Resolved]
  - Pain [Not Recovered/Not Resolved]
  - Emotional distress [Not Recovered/Not Resolved]
  - Anxiety [Not Recovered/Not Resolved]
  - Back injury [Unknown]

NARRATIVE: CASE EVENT DATE: 20160301
